FAERS Safety Report 6475388-0 (Version None)
Quarter: 2009Q4

REPORT INFORMATION
  Report Type: 
  Country: None (occurrence: None)
  Receive Date: 20091119
  Receipt Date: 20090926
  Transmission Date: 20100525
  Serious: No
  Sender: FDA-Public Use
  Company Number: WAES 0909USA04389

PATIENT

DRUGS (1)
  1. JANUVIA [Suspect]
     Dosage: 100 MG/UNK/PO
     Route: 048

REACTIONS (1)
  - URINARY TRACT INFECTION [None]
